FAERS Safety Report 10389461 (Version 1)
Quarter: 2014Q3

REPORT INFORMATION
  Report Type: Spontaneous
  Country: US (occurrence: US)
  Receive Date: 20140818
  Receipt Date: 20140818
  Transmission Date: 20150326
  Serious: No
  Sender: FDA-Public Use
  Company Number: US-BIOGENIDEC-2014BI079510

PATIENT
  Age: 50 Year
  Sex: Female

DRUGS (4)
  1. CLARINEX [Concomitant]
     Active Substance: DESLORATADINE
  2. ASPIRIN. [Concomitant]
     Active Substance: ASPIRIN
  3. BACLOFEN. [Concomitant]
     Active Substance: BACLOFEN
  4. TECFIDERA [Suspect]
     Active Substance: DIMETHYL FUMARATE
     Indication: MULTIPLE SCLEROSIS
     Route: 048
     Dates: start: 20140415

REACTIONS (1)
  - Muscular weakness [Unknown]
